FAERS Safety Report 20194757 (Version 2)
Quarter: 2023Q1

REPORT INFORMATION
  Report Type: Spontaneous
  Country: US (occurrence: US)
  Receive Date: 20211216
  Receipt Date: 20230124
  Transmission Date: 20230418
  Serious: No
  Sender: FDA-Public Use
  Company Number: US-SA-SAC20211213000327

PATIENT
  Age: 59 Year
  Sex: Male

DRUGS (3)
  1. AUBAGIO [Suspect]
     Active Substance: TERIFLUNOMIDE
     Indication: Multiple sclerosis
     Dosage: 14 MG, QD
     Route: 048
  2. COPAXONE [Suspect]
     Active Substance: GLATIRAMER ACETATE
     Indication: Product used for unknown indication
     Dosage: UNK
  3. METHADONE [Concomitant]
     Active Substance: METHADONE HYDROCHLORIDE
     Dosage: UNK

REACTIONS (9)
  - Nasal congestion [Unknown]
  - Chest pain [Unknown]
  - Dyspnoea [Unknown]
  - Injection site reaction [Unknown]
  - Feeling abnormal [Unknown]
  - Hyperhidrosis [Unknown]
  - Heart rate increased [Recovering/Resolving]
  - Hypertension [Unknown]
  - Headache [Unknown]
